FAERS Safety Report 5259804-8 (Version None)
Quarter: 2007Q1

REPORT INFORMATION
  Report Type: 
  Country: None (occurrence: None)
  Receive Date: 20061117
  Receipt Date: 20060825
  Transmission Date: 20070707
  Serious: Yes (Other)
  Sender: FDA-Public Use
  Company Number: US-JNJFOC-20060604431

PATIENT
  Age: 74 Year
  Sex: Female
  Weight: 72.5755 kg

DRUGS (17)
  1. LEVAQUIN [Suspect]
     Indication: CELLULITIS
     Dosage: 750 MG, 1 IN  24 HOUR, ORAL
     Route: 048
     Dates: start: 20060613, end: 20060614
  2. COUMADIN [Concomitant]
  3. CALCIUM CITRATE (CALCIUM CITRATE) [Concomitant]
  4. LEVOTHYROXINE SODIUM [Concomitant]
  5. ASPIRIN [Concomitant]
  6. BUMEX [Concomitant]
  7. DIAZEPAM [Concomitant]
  8. MEVACOR [Concomitant]
  9. PRILOSEC [Concomitant]
  10. ACETAMINOPHEN [Concomitant]
  11. MEPERIDINE HCL [Concomitant]
  12. ISORDIL [Concomitant]
  13. AZITHROMYCIN [Concomitant]
  14. TENORMIN [Concomitant]
  15. CAPOTEN [Concomitant]
  16. ZYRTEC [Concomitant]
  17. FISH OIL (FISH OIL) [Concomitant]

REACTIONS (1)
  - TENDONITIS [None]
